FAERS Safety Report 8814252 (Version 1)
Quarter: 2012Q4

REPORT INFORMATION
  Report Type: 
  Country: US (occurrence: None)
  Receive Date: 20120926
  Receipt Date: 20120926
  Transmission Date: 20130627
  Serious: Yes (Hospitalization)
  Sender: FDA-Public Use
  Company Number: None

PATIENT
  Sex: Female
  Weight: 25.4 kg

DRUGS (4)
  1. CYCLOPHOSPHAMIDE [Suspect]
     Dates: end: 20120918
  2. CYTARABINE [Suspect]
     Dates: start: 20120918
  3. MERCAPTOPURINE [Suspect]
     Dates: end: 20120920
  4. METHOTREXATE [Suspect]
     Dates: end: 20120918

REACTIONS (2)
  - Appendicitis [None]
  - Caecitis [None]
